FAERS Safety Report 6955578-0 (Version None)
Quarter: 2010Q3

REPORT INFORMATION
  Report Type: 
  Country: None (occurrence: None)
  Receive Date: 20100826
  Receipt Date: 20100826
  Transmission Date: 20110219
  Serious: Yes (Other)
  Sender: FDA-Public Use
  Company Number: None

PATIENT
  Sex: Female

DRUGS (3)
  1. SIMPONI [Suspect]
     Indication: RHEUMATOID ARTHRITIS
     Dosage: INJECT 50MG ONCE MONTHLY SQ
     Route: 058
     Dates: start: 20100329, end: 20100825
  2. METHOTREXATE [Concomitant]
  3. HUMIRA [Concomitant]

REACTIONS (1)
  - HERPES ZOSTER [None]
